FAERS Safety Report 13746609 (Version 3)
Quarter: 2017Q3

REPORT INFORMATION
  Report Type: Spontaneous
  Country: CN (occurrence: CN)
  Receive Date: 20170712
  Receipt Date: 20170818
  Transmission Date: 20171127
  Serious: Yes (Hospitalization, Other)
  Sender: FDA-Public Use
  Company Number: CN-GILEAD-2017-0282197

PATIENT
  Age: 47 Year
  Sex: Male

DRUGS (2)
  1. EUTHYROX [Suspect]
     Active Substance: LEVOTHYROXINE SODIUM
     Indication: THYROID CYST
     Dosage: 25 UG, QD
     Route: 048
     Dates: start: 201701
  2. HEPSERA [Suspect]
     Active Substance: ADEFOVIR DIPIVOXIL
     Indication: HEPATITIS B
     Dosage: 1 DF, QD
     Route: 048
     Dates: end: 20170220

REACTIONS (9)
  - Thyroid cyst [Unknown]
  - Gait inability [Recovered/Resolved]
  - Osteoporosis [Recovering/Resolving]
  - Blood phosphorus decreased [Recovered/Resolved]
  - Rheumatoid arthritis [Unknown]
  - Spinal pain [Recovered/Resolved]
  - Bone pain [Recovered/Resolved]
  - Hyperthyroidism [Unknown]
  - Pelvic pain [Recovered/Resolved]

NARRATIVE: CASE EVENT DATE: 201701
